FAERS Safety Report 12671350 (Version 1)
Quarter: 2016Q3

REPORT INFORMATION
  Report Type: Spontaneous
  Country: US (occurrence: US)
  Receive Date: 20160822
  Receipt Date: 20160822
  Transmission Date: 20161109
  Serious: No
  Sender: FDA-Public Use
  Company Number: US-TEVA-670671USA

PATIENT
  Age: 60 Year
  Sex: Female
  Weight: 55.78 kg

DRUGS (5)
  1. TYLENOL [Concomitant]
     Active Substance: ACETAMINOPHEN
  2. FEXOFENADINE [Suspect]
     Active Substance: FEXOFENADINE\FEXOFENADINE HYDROCHLORIDE
     Indication: THROAT IRRITATION
  3. FEXOFENADINE [Suspect]
     Active Substance: FEXOFENADINE\FEXOFENADINE HYDROCHLORIDE
     Indication: EYE PRURITUS
  4. FEXOFENADINE [Suspect]
     Active Substance: FEXOFENADINE\FEXOFENADINE HYDROCHLORIDE
     Indication: SEASONAL ALLERGY
  5. FEXOFENADINE [Suspect]
     Active Substance: FEXOFENADINE\FEXOFENADINE HYDROCHLORIDE
     Indication: LACRIMATION INCREASED
     Dosage: 180 MILLIGRAM DAILY;
     Route: 048
     Dates: start: 20160505, end: 20160525

REACTIONS (1)
  - Drug ineffective [Unknown]

NARRATIVE: CASE EVENT DATE: 20160505
